FAERS Safety Report 13693505 (Version 2)
Quarter: 2017Q2

REPORT INFORMATION
  Report Type: Report from Study
  Country: DE (occurrence: DE)
  Receive Date: 20170627
  Receipt Date: 20170629
  Transmission Date: 20170830
  Serious: Yes (Hospitalization, Other)
  Sender: FDA-Public Use
  Company Number: DE-BAYER-2017-120888

PATIENT
  Age: 58 Year
  Sex: Female

DRUGS (3)
  1. BETAFERON [Suspect]
     Active Substance: INTERFERON BETA-1B
     Indication: MULTIPLE SCLEROSIS
     Dosage: 250 ?G, QOD
     Route: 058
     Dates: start: 20070501
  2. BISOPROLOL [Concomitant]
     Active Substance: BISOPROLOL
     Indication: ARRHYTHMIA PROPHYLAXIS
     Dosage: 5 MG, BID
     Route: 048
  3. MAGNESIUM [Concomitant]
     Active Substance: MAGNESIUM
     Dosage: UNK

REACTIONS (10)
  - Hyperhidrosis [Not Recovered/Not Resolved]
  - Atrial fibrillation [Unknown]
  - Gastrointestinal infection [Recovered/Resolved]
  - Atrial fibrillation [Recovered/Resolved]
  - Extrasystoles [Recovered/Resolved]
  - Somnolence [Not Recovered/Not Resolved]
  - Viral upper respiratory tract infection [Recovered/Resolved]
  - Sneezing [Recovered/Resolved]
  - Rhinorrhoea [Recovered/Resolved]
  - Liver function test increased [None]

NARRATIVE: CASE EVENT DATE: 2012
